FAERS Safety Report 10742305 (Version 1)
Quarter: 2015Q1

REPORT INFORMATION
  Report Type: Spontaneous
  Country: CN (occurrence: CN)
  Receive Date: 20150127
  Receipt Date: 20150127
  Transmission Date: 20150721
  Serious: Yes (Other)
  Sender: FDA-Public Use
  Company Number: CN-ELI_LILLY_AND_COMPANY-CN201501006288

PATIENT
  Sex: Female
  Weight: 14 kg

DRUGS (2)
  1. CECLOR [Suspect]
     Active Substance: CEFACLOR
     Indication: PYREXIA
  2. CECLOR [Suspect]
     Active Substance: CEFACLOR
     Indication: RESPIRATORY TRACT INFECTION
     Dosage: UNK
     Route: 048
     Dates: start: 20140705, end: 20140706

REACTIONS (1)
  - Rash generalised [Recovered/Resolved]
